FAERS Safety Report 10571113 (Version 3)
Quarter: 2022Q2

REPORT INFORMATION
  Report Type: Spontaneous
  Country: NL (occurrence: NL)
  Receive Date: 20141107
  Receipt Date: 20220425
  Transmission Date: 20220721
  Serious: Yes (Other)
  Sender: FDA-Public Use
  Company Number: PHHY2014NL144722

PATIENT
  Sex: Male

DRUGS (2)
  1. ATORVASTATIN CALCIUM [Suspect]
     Active Substance: ATORVASTATIN CALCIUM
     Indication: Cardiovascular disorder
     Dosage: 20 MG, QD
     Route: 065
  2. METOPROLOL [Concomitant]
     Active Substance: METOPROLOL
     Indication: Product used for unknown indication
     Dosage: UNK
     Route: 065

REACTIONS (5)
  - Muscle rupture [Recovered/Resolved]
  - Abnormal faeces [Recovered/Resolved]
  - Back pain [Recovered/Resolved]
  - Hepatic enzyme abnormal [Recovered/Resolved]
  - Myalgia [Recovered/Resolved]
